FAERS Safety Report 9325982 (Version 1)
Quarter: 2013Q2

REPORT INFORMATION
  Report Type: Spontaneous
  Country: US (occurrence: None)
  Receive Date: 20130603
  Receipt Date: 20130603
  Transmission Date: 20140414
  Serious: Yes (Other)
  Sender: FDA-Public Use
  Company Number: None

PATIENT
  Age: 74 Year
  Sex: Female
  Weight: 81.65 kg

DRUGS (2)
  1. LEVOFLOXACIN [Suspect]
     Indication: BRONCHOPNEUMONIA
     Route: 048
  2. PREDNISONE 20 MG QUALITEST [Suspect]
     Route: 048

REACTIONS (4)
  - Arthralgia [None]
  - Insomnia [None]
  - Gait disturbance [None]
  - Dysstasia [None]
